FAERS Safety Report 5464491-X (Version None)
Quarter: 2007Q3

REPORT INFORMATION
  Report Type: 
  Country: None (occurrence: None)
  Receive Date: 20070921
  Receipt Date: 20070911
  Transmission Date: 20080115
  Serious: Yes (Other)
  Sender: FDA-Public Use
  Company Number: US-GENENTECH-245705

PATIENT
  Sex: Female
  Weight: 43 kg

DRUGS (1)
  1. RAPTIVA [Suspect]
     Indication: PSORIASIS
     Dosage: 93 MG, 1/WEEK
     Dates: start: 20060101

REACTIONS (1)
  - ALVEOLITIS ALLERGIC [None]
